FAERS Safety Report 7673415-6 (Version None)
Quarter: 2011Q3

REPORT INFORMATION
  Report Type: 
  Country: None (occurrence: None)
  Receive Date: 20110810
  Receipt Date: 20110805
  Transmission Date: 20111222
  Serious: No
  Sender: FDA-Public Use
  Company Number: US-PFIZER INC-2011181291

PATIENT
  Sex: Male

DRUGS (1)
  1. GEODON [Suspect]
     Dosage: 20 MG, 2X/DAY

REACTIONS (1)
  - RESTLESS LEGS SYNDROME [None]
